FAERS Safety Report 7861018-X (Version None)
Quarter: 2011Q4

REPORT INFORMATION
  Report Type: 
  Country: None (occurrence: None)
  Receive Date: 20111027
  Receipt Date: 20111026
  Transmission Date: 20120403
  Serious: Yes (Other)
  Sender: FDA-Public Use
  Company Number: US-GLAXOSMITHKLINE-A0950614A

PATIENT
  Age: 87 Year
  Sex: Female

DRUGS (2)
  1. SARNA ORIGINAL ANTI-ITCH LOTION [Suspect]
     Indication: ECZEMA
  2. FLOVENT [Concomitant]

REACTIONS (6)
  - DRUG ADMINISTRATION ERROR [None]
  - TONGUE PRURITUS [None]
  - ASTHMA [None]
  - DYSPNOEA [None]
  - DRUG INEFFECTIVE [None]
  - CHEST DISCOMFORT [None]
